FAERS Safety Report 20591203 (Version 1)
Quarter: 2022Q1

REPORT INFORMATION
  Report Type: Spontaneous
  Country: US (occurrence: US)
  Receive Date: 20220314
  Receipt Date: 20220314
  Transmission Date: 20220423
  Serious: No
  Sender: FDA-Public Use
  Company Number: US-SANOFI-01006874

PATIENT
  Age: 69 Year
  Sex: Male

DRUGS (5)
  1. LANTUS SOLOSTAR [Suspect]
     Active Substance: INSULIN GLARGINE
     Indication: Type 2 diabetes mellitus
     Dosage: 60 U
  2. LANTUS SOLOSTAR [Suspect]
     Active Substance: INSULIN GLARGINE
     Dosage: 40 U
  3. METFORMIN [Concomitant]
     Active Substance: METFORMIN HYDROCHLORIDE
  4. GLIPIZIDE [Concomitant]
     Active Substance: GLIPIZIDE
  5. TOUJEO MAX [Suspect]
     Active Substance: INSULIN GLARGINE
     Dosage: 46 U, QD

REACTIONS (3)
  - Pruritus [Unknown]
  - Hypoaesthesia [Unknown]
  - Adverse drug reaction [Unknown]
